FAERS Safety Report 10242767 (Version 2)
Quarter: 2014Q3

REPORT INFORMATION
  Report Type: Spontaneous
  Country: IT (occurrence: IT)
  Receive Date: 20140617
  Receipt Date: 20140717
  Transmission Date: 20150326
  Serious: Yes (Hospitalization, Other)
  Sender: FDA-Public Use
  Company Number: IT-ABBVIE-14P-083-1248096-00

PATIENT
  Age: 42 Year
  Sex: Female

DRUGS (4)
  1. RIVOTRIL [Suspect]
     Active Substance: CLONAZEPAM
     Indication: SUICIDE ATTEMPT
     Route: 048
     Dates: start: 20140413, end: 20140413
  2. NOZINAN [Suspect]
     Active Substance: LEVOMEPROMAZINE
     Indication: SUICIDE ATTEMPT
     Dosage: EXTENDED RELEASE TABLET
     Route: 048
     Dates: start: 20140413, end: 20140413
  3. DEPAKENE [Suspect]
     Active Substance: VALPROIC ACID
     Indication: PERSONALITY DISORDER
     Route: 048
     Dates: start: 20140413, end: 20140413
  4. TRITTICO [Suspect]
     Active Substance: TRAZODONE HYDROCHLORIDE
     Indication: SUICIDE ATTEMPT
     Dosage: TOTAL
     Route: 048
     Dates: start: 20140413, end: 20140413

REACTIONS (3)
  - Toxicity to various agents [Recovered/Resolved]
  - Sluggishness [Recovered/Resolved]
  - Suicide attempt [Unknown]

NARRATIVE: CASE EVENT DATE: 20140413
